FAERS Safety Report 9461835 (Version 1)
Quarter: 2013Q3

REPORT INFORMATION
  Report Type: Spontaneous
  Country: US (occurrence: None)
  Receive Date: 20130815
  Receipt Date: 20130815
  Transmission Date: 20140515
  Serious: Yes (Other)
  Sender: FDA-Public Use
  Company Number: None

PATIENT
  Age: 48 Year
  Sex: Female
  Weight: 65.77 kg

DRUGS (1)
  1. WELLBUTRIN [Suspect]
     Indication: ANXIETY
     Dosage: WELLBUTRIN  ONCE DAILY  TAKEN BY MOUTH
     Route: 048
     Dates: start: 20121201, end: 20130401

REACTIONS (1)
  - Dystonia [None]
